FAERS Safety Report 16228474 (Version 1)
Quarter: 2019Q2

REPORT INFORMATION
  Report Type: Spontaneous
  Country: US (occurrence: US)
  Receive Date: 20190423
  Receipt Date: 20190423
  Transmission Date: 20190711
  Serious: No
  Sender: FDA-Public Use
  Company Number: US-TEVA-2019-US-1039456

PATIENT
  Age: 65 Year
  Sex: Female

DRUGS (1)
  1. CLONAZEPAM TABLETS [Suspect]
     Active Substance: CLONAZEPAM

REACTIONS (3)
  - Hypoacusis [Unknown]
  - Drug ineffective [Unknown]
  - Insomnia [Unknown]
